FAERS Safety Report 4504317-1 (Version None)
Quarter: 2004Q4

REPORT INFORMATION
  Report Type: 
  Country: None (occurrence: None)
  Receive Date: 20041116
  Receipt Date: 20041116
  Transmission Date: 20050328
  Serious: Yes (Hospitalization)
  Sender: FDA-Public Use
  Company Number: None

PATIENT
  Age: 84 Year
  Sex: Male
  Weight: 51.2565 kg

DRUGS (6)
  1. CLOPIDOGREL [Suspect]
     Indication: CAROTID ARTERY STENOSIS
     Dosage: 75 MG DAILY
     Dates: start: 20040501, end: 20040707
  2. ACETAMINOPHEN [Concomitant]
  3. CLOPIDOGREL BISULFATE [Concomitant]
  4. LISINOPRIL [Concomitant]
  5. RANITIDINE HCL [Concomitant]
  6. SODIUM CHLORIDE [Concomitant]

REACTIONS (3)
  - DIVERTICULUM [None]
  - HIATUS HERNIA [None]
  - MELAENA [None]
